FAERS Safety Report 15403314 (Version 1)
Quarter: 2018Q3

REPORT INFORMATION
  Report Type: Report from Study
  Country: US (occurrence: US)
  Receive Date: 20180919
  Receipt Date: 20180919
  Transmission Date: 20181010
  Serious: Yes (Hospitalization, Other)
  Sender: FDA-Public Use
  Company Number: US-BAYER-2018-134797

PATIENT
  Age: 65 Year
  Sex: Male

DRUGS (1)
  1. NEXAVAR [Suspect]
     Active Substance: SORAFENIB
     Indication: HEPATOCELLULAR CARCINOMA
     Dosage: 400 MG, BID
     Dates: end: 20180831

REACTIONS (4)
  - Fatigue [None]
  - Confusional state [Not Recovered/Not Resolved]
  - Hypertension [None]
  - Skin disorder [None]

NARRATIVE: CASE EVENT DATE: 20180831
